FAERS Safety Report 23532212 (Version 1)
Quarter: 2024Q1

REPORT INFORMATION
  Report Type: Report from Study
  Country: CO (occurrence: CO)
  Receive Date: 20240216
  Receipt Date: 20240216
  Transmission Date: 20240409
  Serious: Yes (Hospitalization)
  Sender: FDA-Public Use
  Company Number: CO-JNJFOC-20240229343

PATIENT
  Age: 26 Year
  Sex: Male
  Weight: 70 kg

DRUGS (3)
  1. INVEGA SUSTENNA [Suspect]
     Active Substance: PALIPERIDONE PALMITATE
     Indication: Schizophrenia
     Dosage: DAY 8
     Route: 030
     Dates: start: 20231229
  2. INVEGA SUSTENNA [Suspect]
     Active Substance: PALIPERIDONE PALMITATE
  3. INVEGA SUSTENNA [Suspect]
     Active Substance: PALIPERIDONE PALMITATE

REACTIONS (8)
  - Suicidal ideation [Unknown]
  - Hallucination [Unknown]
  - Aggression [Unknown]
  - Thinking abnormal [Unknown]
  - Insomnia [Unknown]
  - Delusion [Unknown]
  - Eating disorder [Unknown]
  - Hyperhidrosis [Unknown]

NARRATIVE: CASE EVENT DATE: 20240107
